FAERS Safety Report 9343392 (Version 1)
Quarter: 2013Q2

REPORT INFORMATION
  Report Type: Spontaneous
  Country: US (occurrence: US)
  Receive Date: 20130612
  Receipt Date: 20130612
  Transmission Date: 20140414
  Serious: No
  Sender: FDA-Public Use
  Company Number: US-B.I. PHARMACEUTICALS,INC./RIDGEFIELD-2013-BI-15967BP

PATIENT
  Age: 56 Year
  Sex: Male
  Weight: 156 kg

DRUGS (8)
  1. MICARDIS [Suspect]
     Indication: HYPERTENSION
     Dosage: 40 MG
     Route: 048
     Dates: start: 2004
  2. TRADJENTA [Suspect]
     Indication: DIABETES MELLITUS
     Dosage: 5 MG
     Route: 048
     Dates: start: 201202
  3. LEVEMIR INSULIN [Concomitant]
     Indication: DIABETES MELLITUS
     Dosage: STRENGTH: 75 UNITS; DAILY DOSE: 150 UNITS
     Route: 058
     Dates: start: 2001
  4. METFORMIN [Concomitant]
     Indication: DIABETES MELLITUS
     Dosage: 2000 MG
     Route: 048
     Dates: start: 2001
  5. VITAMIN C [Concomitant]
     Indication: VITAMIN SUPPLEMENTATION
     Dosage: 500 MG
     Route: 048
     Dates: start: 2010
  6. VITAMIN D 3 [Concomitant]
     Indication: VITAMIN SUPPLEMENTATION
     Dates: start: 2010
  7. NOVOLOG INSULIN [Concomitant]
     Indication: DIABETES MELLITUS
     Dosage: STRENGTH: 35 UNITS; DAILY DOSE: 82 UNIT  (35 UNITS IN MORNING, 12 UNITS IN AFTERNOON AND 35 UNITS IN
     Route: 058
     Dates: start: 2002
  8. OMEGA 3 [Concomitant]
     Indication: VITAMIN SUPPLEMENTATION
     Dosage: 500 MG
     Route: 048
     Dates: start: 2010

REACTIONS (2)
  - Sluggishness [Not Recovered/Not Resolved]
  - Myalgia [Not Recovered/Not Resolved]
